FAERS Safety Report 4392578-1 (Version None)
Quarter: 2004Q3

REPORT INFORMATION
  Report Type: 
  Country: None (occurrence: None)
  Receive Date: 20040701
  Receipt Date: 20040623
  Transmission Date: 20050211
  Serious: Yes (Other)
  Sender: FDA-Public Use
  Company Number: HQWYE651824JUN04

PATIENT
  Age: 45 Year
  Sex: Female

DRUGS (4)
  1. EFFEXOR XR [Suspect]
     Indication: DEPRESSION
     Dosage: 300 MG 1X PER 1 DAY ORAL; UNSPECIFIED LOWER DOSE ORAL; TAPERING OFF ORAL; 35 MG AS A LIQUID COMPOUND
     Route: 048
     Dates: start: 20030801, end: 20030101
  2. EFFEXOR XR [Suspect]
     Indication: DEPRESSION
     Dosage: 300 MG 1X PER 1 DAY ORAL; UNSPECIFIED LOWER DOSE ORAL; TAPERING OFF ORAL; 35 MG AS A LIQUID COMPOUND
     Route: 048
     Dates: start: 20030101, end: 20040202
  3. EFFEXOR XR [Suspect]
     Indication: DEPRESSION
     Dosage: 300 MG 1X PER 1 DAY ORAL; UNSPECIFIED LOWER DOSE ORAL; TAPERING OFF ORAL; 35 MG AS A LIQUID COMPOUND
     Route: 048
     Dates: start: 20040201, end: 20040622
  4. EFFEXOR XR [Suspect]
     Indication: DEPRESSION
     Dosage: 300 MG 1X PER 1 DAY ORAL; UNSPECIFIED LOWER DOSE ORAL; TAPERING OFF ORAL; 35 MG AS A LIQUID COMPOUND
     Route: 048
     Dates: start: 20040623

REACTIONS (8)
  - AKATHISIA [None]
  - ANGER [None]
  - DRUG WITHDRAWAL SYNDROME [None]
  - HOSTILITY [None]
  - IMPAIRED WORK ABILITY [None]
  - PARAESTHESIA [None]
  - PARAESTHESIA ORAL [None]
  - SUICIDAL IDEATION [None]
